FAERS Safety Report 4780392-4 (Version None)
Quarter: 2005Q3

REPORT INFORMATION
  Report Type: 
  Country: None (occurrence: None)
  Receive Date: 20050926
  Receipt Date: 20050912
  Transmission Date: 20060218
  Serious: Yes (Life-Threatening, Hospitalization)
  Sender: FDA-Public Use
  Company Number: 2005099360

PATIENT
  Age: 68 Year
  Sex: Male
  Weight: 97 kg

DRUGS (4)
  1. VIAGRA [Suspect]
     Indication: ERECTILE DYSFUNCTION
     Dosage: 50 MG (50 MG, 1 IN 1 D); ORAL
     Route: 048
     Dates: start: 19990929, end: 20000101
  2. VERAPAMIL HYDROCHLORIDE [Concomitant]
  3. CELIPROLOL [Concomitant]
  4. ACETYLSALICYLATE LYSINE [Concomitant]

REACTIONS (2)
  - CORONARY OSTIAL STENOSIS [None]
  - MYOCARDIAL INFARCTION [None]
